FAERS Safety Report 7284539-X (Version None)
Quarter: 2011Q1

REPORT INFORMATION
  Report Type: 
  Country: None (occurrence: None)
  Receive Date: 20110209
  Receipt Date: 20110204
  Transmission Date: 20110831
  Serious: Yes (Disabling, Other)
  Sender: FDA-Public Use
  Company Number: FR-BRISTOL-MYERS SQUIBB COMPANY-15329287

PATIENT
  Age: 55 Year
  Sex: Female
  Weight: 52 kg

DRUGS (4)
  1. CILENGITIDE [Suspect]
     Indication: HEAD AND NECK CANCER
     Dosage: 9TH INF ON 25AUG10
     Route: 042
     Dates: start: 20100615
  2. FLUOROURACIL [Suspect]
     Indication: HEAD AND NECK CANCER
     Dosage: CONTINOUS INFUSION FROM DAY 1 TO 4 OF CYCLE 4TH INF ON 21AUG10
     Route: 042
     Dates: start: 20100615, end: 20100821
  3. CETUXIMAB [Suspect]
     Indication: HEAD AND NECK CANCER
     Dosage: CETUXIMAB 5MG/ML 9TH INF ON :25JUN10
     Route: 042
     Dates: start: 20100615
  4. CISPLATIN [Suspect]
     Indication: HEAD AND NECK CANCER
     Dosage: 4TH INF ON 18AUG10,
     Route: 042
     Dates: start: 20100615, end: 20100818

REACTIONS (1)
  - DEAFNESS [None]
